FAERS Safety Report 9453398 (Version 1)
Quarter: 2013Q3

REPORT INFORMATION
  Report Type: Spontaneous
  Country: US (occurrence: None)
  Receive Date: 20130809
  Receipt Date: 20130809
  Transmission Date: 20140515
  Serious: Yes (Other)
  Sender: FDA-Public Use
  Company Number: None

PATIENT
  Age: 66 Year
  Sex: Male
  Weight: 115.67 kg

DRUGS (7)
  1. FECAL TRANSPLANT [Suspect]
     Indication: CLOSTRIDIUM COLITIS
     Dates: start: 20130726
  2. MELOXICAM [Concomitant]
  3. OXYCODONE [Concomitant]
  4. TRAZADONE [Concomitant]
  5. VANCOMYCIN [Concomitant]
  6. FENTANYL [Concomitant]
  7. VERSED [Concomitant]

REACTIONS (2)
  - Large intestine perforation [None]
  - Procedural complication [None]
